FAERS Safety Report 6899347-9 (Version None)
Quarter: 2010Q3

REPORT INFORMATION
  Report Type: 
  Country: None (occurrence: None)
  Receive Date: 20100803
  Receipt Date: 20090407
  Transmission Date: 20110219
  Serious: Yes (Other)
  Sender: FDA-Public Use
  Company Number: US-PFIZER INC-2009172723

PATIENT

DRUGS (2)
  1. NEURONTIN [Suspect]
  2. NEXIUM [Suspect]

REACTIONS (1)
  - CONVULSION [None]
